FAERS Safety Report 11983282 (Version 7)
Quarter: 2016Q4

REPORT INFORMATION
  Report Type: Spontaneous
  Country: US (occurrence: US)
  Receive Date: 20160201
  Receipt Date: 20161102
  Transmission Date: 20170206
  Serious: Yes (Hospitalization, Other)
  Sender: FDA-Public Use
  Company Number: US-ASTELLAS-2016US003434

PATIENT
  Sex: Male

DRUGS (1)
  1. XTANDI [Suspect]
     Active Substance: ENZALUTAMIDE
     Indication: PROSTATE CANCER
     Route: 048

REACTIONS (11)
  - Fatigue [Not Recovered/Not Resolved]
  - Drug ineffective [Not Recovered/Not Resolved]
  - Abdominal discomfort [Not Recovered/Not Resolved]
  - Pruritus [Unknown]
  - Haemoglobin decreased [Unknown]
  - Haemoglobin decreased [Not Recovered/Not Resolved]
  - Renal failure [Unknown]
  - Urinary tract infection [Unknown]
  - Hot flush [Unknown]
  - Prostatic specific antigen increased [Unknown]
  - Nausea [Not Recovered/Not Resolved]
